FAERS Safety Report 24219361 (Version 4)
Quarter: 2024Q3

REPORT INFORMATION
  Report Type: Report from Study
  Country: US (occurrence: US)
  Receive Date: 20240816
  Receipt Date: 20240911
  Transmission Date: 20241017
  Serious: Yes (Death, Hospitalization)
  Sender: ABBVIE
  Company Number: US-ABBVIE-5881916

PATIENT
  Sex: Female

DRUGS (1)
  1. SKYRIZI [Suspect]
     Active Substance: RISANKIZUMAB-RZAA
     Indication: Crohn^s disease
     Dosage: FORM STRENGTH : 360 MG
     Route: 058
     Dates: start: 20240412, end: 202406

REACTIONS (4)
  - Pulse absent [Fatal]
  - Crohn^s disease [Unknown]
  - Renal disorder [Unknown]
  - Haematemesis [Unknown]

NARRATIVE: CASE EVENT DATE: 20240101
